FAERS Safety Report 14307876 (Version 2)
Quarter: 2017Q4

REPORT INFORMATION
  Report Type: Report from Study
  Country: US (occurrence: US)
  Receive Date: 20171220
  Receipt Date: 20171229
  Transmission Date: 20180321
  Serious: No
  Sender: FDA-Public Use
  Company Number: US-ROCHE-2043151

PATIENT
  Age: 70 Year
  Sex: Male

DRUGS (2)
  1. OCREVUS [Suspect]
     Active Substance: OCRELIZUMAB
     Indication: MULTIPLE SCLEROSIS
     Dosage: PATIENT WAS PRESCRIBED WITH OCRELIZUMAB INFUSION 300 MG ON DAY 1 AND DAY 15 FOLLOWED BY 600 MG EVERY
     Route: 065
     Dates: start: 20171017
  2. OCREVUS [Suspect]
     Active Substance: OCRELIZUMAB
     Route: 065
     Dates: start: 20171031

REACTIONS (5)
  - Gingival bleeding [Unknown]
  - Oral candidiasis [Not Recovered/Not Resolved]
  - Dry mouth [Unknown]
  - Oral pain [Unknown]
  - Tongue coated [Unknown]

NARRATIVE: CASE EVENT DATE: 20171215
